FAERS Safety Report 17543233 (Version 2)
Quarter: 2020Q1

REPORT INFORMATION
  Report Type: Spontaneous
  Country: CA (occurrence: CA)
  Receive Date: 20200316
  Receipt Date: 20200316
  Transmission Date: 20200409
  Serious: Yes (Death, Hospitalization, Other)
  Sender: FDA-Public Use
  Company Number: CA-ORION CORPORATION ORION PHARMA-TREX2020-1339

PATIENT
  Age: 70 Year
  Sex: Male

DRUGS (4)
  1. HYDROXYCHLOROQUINE SULFATE. [Suspect]
     Active Substance: HYDROXYCHLOROQUINE SULFATE
     Indication: RHEUMATOID ARTHRITIS
     Route: 065
  2. PREDNISONE. [Suspect]
     Active Substance: PREDNISONE
     Indication: RHEUMATOID ARTHRITIS
     Route: 065
  3. METHOTREXATE (TRADE NAME UNKNOWN) [Suspect]
     Active Substance: METHOTREXATE
     Indication: RHEUMATOID ARTHRITIS
     Route: 065
  4. PREDNISONE. [Suspect]
     Active Substance: PREDNISONE
     Route: 065

REACTIONS (15)
  - Blister [Fatal]
  - Hypotension [Fatal]
  - Klebsiella infection [Fatal]
  - Odynophagia [Fatal]
  - Thrombocytopenia [Fatal]
  - Rash [Fatal]
  - Fatigue [Fatal]
  - Varicella zoster virus infection [Fatal]
  - Product use issue [Unknown]
  - Chills [Fatal]
  - Rash vesicular [Fatal]
  - Skin lesion [Fatal]
  - Erythema [Fatal]
  - Leukopenia [Fatal]
  - Multiple organ dysfunction syndrome [Fatal]
